FAERS Safety Report 14926452 (Version 2)
Quarter: 2018Q3

REPORT INFORMATION
  Report Type: Report from Study
  Country: DE (occurrence: DE)
  Receive Date: 20180523
  Receipt Date: 20180704
  Transmission Date: 20181010
  Serious: Yes (Death, Hospitalization, Other)
  Sender: FDA-Public Use
  Company Number: DE-BRISTOL-MYERS SQUIBB COMPANY-BMS-2017-044926

PATIENT
  Age: 62 Year
  Sex: Male

DRUGS (5)
  1. ASPIRIN. [Concomitant]
     Active Substance: ASPIRIN
     Indication: CEREBROVASCULAR DISORDER
     Dosage: UNK
     Route: 065
  2. RANITIDIN [Concomitant]
     Active Substance: RANITIDINE HYDROCHLORIDE
     Indication: PROPHYLAXIS
     Dosage: 300 MG, UNK
     Route: 065
     Dates: start: 20170504
  3. PANTOPRAZOLE [Concomitant]
     Active Substance: PANTOPRAZOLE
     Indication: PRODUCT USED FOR UNKNOWN INDICATION
     Dosage: 40 MG, UNK
     Route: 065
     Dates: start: 20170516, end: 20170522
  4. NIVOLUMAB [Suspect]
     Active Substance: NIVOLUMAB
     Indication: NON-SMALL CELL LUNG CANCER
     Dosage: 3 MG/KG, Q2WK
     Route: 042
     Dates: start: 20170504, end: 20170530
  5. PREDNISOLON                        /00016201/ [Concomitant]
     Active Substance: PREDNISOLONE
     Indication: MALIGNANT NEOPLASM PROGRESSION
     Dosage: 50 MG, UNK
     Route: 065
     Dates: start: 20170505

REACTIONS (7)
  - Thoracic cavity drainage [Not Recovered/Not Resolved]
  - Oesophageal stenosis [Recovered/Resolved with Sequelae]
  - Dyspnoea [Recovered/Resolved with Sequelae]
  - Malignant neoplasm progression [Fatal]
  - Pleural effusion [Recovered/Resolved with Sequelae]
  - Renal failure [Fatal]
  - Aspiration pleural cavity [Unknown]

NARRATIVE: CASE EVENT DATE: 20170516
